FAERS Safety Report 7419244-X (Version None)
Quarter: 2011Q2

REPORT INFORMATION
  Report Type: 
  Country: None (occurrence: None)
  Receive Date: 20110415
  Receipt Date: 20110411
  Transmission Date: 20111010
  Serious: Yes (Death)
  Sender: FDA-Public Use
  Company Number: DE-ASTRAZENECA-1997AP35755

PATIENT
  Age: 26 Year
  Sex: Male
  Weight: 91 kg

DRUGS (2)
  1. DIPRIVAN [Suspect]
     Route: 042
  2. DIPHENHYDRAMINE [Concomitant]
     Indication: DRUG ABUSE

REACTIONS (3)
  - DRUG ABUSE [None]
  - RESPIRATORY ARREST [None]
  - RESPIRATORY DEPRESSION [None]
